FAERS Safety Report 5034366-9 (Version None)
Quarter: 2006Q2

REPORT INFORMATION
  Report Type: 
  Country: None (occurrence: None)
  Receive Date: 20060518
  Receipt Date: 20050829
  Transmission Date: 20061013
  Serious: Yes (Other)
  Sender: FDA-Public Use
  Company Number: 2005096159

PATIENT
  Age: 34 Year
  Sex: Female

DRUGS (7)
  1. DEPO-PROVERA [Suspect]
     Indication: DYSMENORRHOEA
     Dosage: SEE IMAGE
     Route: 030
     Dates: start: 19950101, end: 19950101
  2. DEPO-PROVERA [Suspect]
     Indication: DYSMENORRHOEA
     Dosage: SEE IMAGE
     Route: 030
     Dates: start: 20050404, end: 20050404
  3. NASACORT AQ (TRIAMCINOLONE ACETATE) [Concomitant]
  4. ZYRTEC [Concomitant]
  5. AMITRIPTYLINE HCL [Concomitant]
  6. ATENOLOL [Concomitant]
  7. ZANTAC [Concomitant]

REACTIONS (1)
  - OSTEOPOROSIS [None]
